FAERS Safety Report 4565997-8 (Version None)
Quarter: 2005Q1

REPORT INFORMATION
  Report Type: 
  Country: None (occurrence: None)
  Receive Date: 20050128
  Receipt Date: 20050118
  Transmission Date: 20050727
  Serious: Yes (Hospitalization)
  Sender: FDA-Public Use
  Company Number: 2005015935

PATIENT
  Sex: Male

DRUGS (2)
  1. NORVASC [Suspect]
     Indication: HYPERTENSION
     Dosage: 10 MG (DAILY)
     Dates: start: 20040101, end: 20050115
  2. ALDACTAZINE               (ALTIZIDE SPIRONOLACTONE) [Concomitant]

REACTIONS (3)
  - ABDOMINAL PAIN [None]
  - SENSATION OF HEAVINESS [None]
  - TACHYCARDIA [None]
